FAERS Safety Report 6947770-6 (Version None)
Quarter: 2010Q3

REPORT INFORMATION
  Report Type: 
  Country: None (occurrence: None)
  Receive Date: 20100828
  Receipt Date: 20090929
  Transmission Date: 20110219
  Serious: No
  Sender: FDA-Public Use
  Company Number: US-ABBOTT-09P-163-0600333-00

PATIENT
  Sex: Female
  Weight: 68.1 kg

DRUGS (13)
  1. NIASPAN [Suspect]
     Indication: BLOOD CHOLESTEROL INCREASED
     Route: 048
     Dates: start: 20090903, end: 20090926
  2. NIASPAN [Suspect]
     Route: 048
     Dates: start: 20090928, end: 20090929
  3. NOVOLIN 70/30 [Concomitant]
     Indication: DIABETES MELLITUS
     Route: 058
  4. MELOXICAM [Concomitant]
     Indication: ARTHRITIS
  5. VALIUM [Concomitant]
     Indication: PRODUCT USED FOR UNKNOWN INDICATION
     Route: 048
  6. ARIMIDEX [Concomitant]
     Indication: NEOPLASM MALIGNANT
     Route: 048
  7. ARIMIDEX [Concomitant]
     Indication: PROPHYLAXIS
  8. FENOFIBRATE [Concomitant]
     Indication: PRODUCT USED FOR UNKNOWN INDICATION
     Route: 048
  9. LEXAPRO [Concomitant]
     Indication: PRODUCT USED FOR UNKNOWN INDICATION
     Route: 048
  10. STOOL SOFTENER [Concomitant]
     Indication: PRODUCT USED FOR UNKNOWN INDICATION
     Route: 048
  11. HYDROCODONE BITARTRATE [Concomitant]
     Indication: BACK PAIN
     Dosage: 1 TO 2 TABS, 10 APAP, DAILY PRN
     Route: 048
  12. PLAVIX [Concomitant]
     Indication: PRODUCT USED FOR UNKNOWN INDICATION
     Route: 048
  13. BENADRYL [Concomitant]
     Indication: PRODUCT USED FOR UNKNOWN INDICATION
     Dosage: DAILY AT HOUR OF SLEEP
     Route: 048

REACTIONS (2)
  - ERYTHEMA [None]
  - PRURITUS [None]
